FAERS Safety Report 10760913 (Version 1)
Quarter: 2015Q1

REPORT INFORMATION
  Report Type: Spontaneous
  Country: GB (occurrence: None)
  Receive Date: 20150202
  Receipt Date: 20150202
  Transmission Date: 20150721
  Serious: Yes (Hospitalization)
  Sender: FDA-Public Use
  Company Number: 20150134

PATIENT
  Age: 62 Year
  Sex: Female

DRUGS (1)
  1. METOJECT PEN (METHOTREXATE DISODIUM) [Suspect]
     Active Substance: METHOTREXATE SODIUM

REACTIONS (2)
  - Upper limb fracture [None]
  - Drug dose omission [None]

NARRATIVE: CASE EVENT DATE: 201401
